FAERS Safety Report 16913957 (Version 1)
Quarter: 2019Q4

REPORT INFORMATION
  Report Type: Spontaneous
  Country: US (occurrence: US)
  Receive Date: 20191014
  Receipt Date: 20191014
  Transmission Date: 20200122
  Serious: Yes (Hospitalization)
  Sender: FDA-Public Use
  Company Number: US-JNJFOC-20191005989

PATIENT
  Age: 29 Year
  Sex: Male
  Weight: 81.72 kg

DRUGS (2)
  1. INVEGA SUSTENNA [Suspect]
     Active Substance: PALIPERIDONE PALMITATE
     Route: 030
     Dates: start: 20190902
  2. INVEGA SUSTENNA [Suspect]
     Active Substance: PALIPERIDONE PALMITATE
     Indication: SCHIZOPHRENIA
     Route: 030
     Dates: start: 20190402, end: 201907

REACTIONS (4)
  - Drug abuse [Unknown]
  - Inappropriate schedule of product administration [Unknown]
  - Abnormal loss of weight [Unknown]
  - Off label use [Unknown]

NARRATIVE: CASE EVENT DATE: 2019
